FAERS Safety Report 4766091-3 (Version None)
Quarter: 2005Q3

REPORT INFORMATION
  Report Type: 
  Country: None (occurrence: None)
  Receive Date: 20050912
  Receipt Date: 20050824
  Transmission Date: 20060218
  Serious: Yes (Death)
  Sender: FDA-Public Use
  Company Number: US-MERCK-0508USA03989

PATIENT
  Age: 80 Year
  Sex: Female
  Weight: 44 kg

DRUGS (4)
  1. FOSAMAX [Suspect]
     Indication: OSTEOPOROSIS
     Route: 048
     Dates: start: 20040302, end: 20050115
  2. ARICEPT [Concomitant]
     Route: 065
  3. PREMPRO [Concomitant]
     Route: 065
  4. [THERAPY UNSPECIFIED] [Concomitant]
     Route: 065

REACTIONS (2)
  - COMPLETED SUICIDE [None]
  - SELF INJURIOUS BEHAVIOUR [None]
